FAERS Safety Report 12237977 (Version 1)
Quarter: 2016Q2

REPORT INFORMATION
  Report Type: Spontaneous
  Country: US (occurrence: None)
  Receive Date: 20160404
  Receipt Date: 20160404
  Transmission Date: 20160815
  Serious: Yes (Hospitalization, Disabling, Other)
  Sender: FDA-Public Use
  Company Number: None

PATIENT
  Age: 62 Year
  Sex: Female
  Weight: 63.5 kg

DRUGS (2)
  1. AZITHROMYCIN. 250 MG [Suspect]
     Active Substance: AZITHROMYCIN ANHYDROUS
     Indication: BRONCHITIS
     Dosage: 5 TABLET(S) IBCE A DAY
     Route: 048
     Dates: start: 20160218, end: 20160222
  2. LIPITOR [Concomitant]
     Active Substance: ATORVASTATIN CALCIUM

REACTIONS (4)
  - Transient ischaemic attack [None]
  - Rash [None]
  - Deafness [None]
  - Ear disorder [None]

NARRATIVE: CASE EVENT DATE: 20160312
